FAERS Safety Report 9370171 (Version 1)
Quarter: 2013Q2

REPORT INFORMATION
  Report Type: Report from Study
  Country: US (occurrence: US)
  Receive Date: 20130626
  Receipt Date: 20130626
  Transmission Date: 20140414
  Serious: Yes (Hospitalization)
  Sender: FDA-Public Use
  Company Number: US-ABBOTT-13P-163-1108737-00

PATIENT
  Age: 38 Year
  Sex: Female

DRUGS (6)
  1. HUMIRA [Suspect]
     Indication: RHEUMATOID ARTHRITIS
     Dates: start: 20130607
  2. NEURONTIN [Concomitant]
     Indication: PRODUCT USED FOR UNKNOWN INDICATION
  3. INDOCIN [Concomitant]
     Indication: INFLAMMATION
  4. GEODON [Concomitant]
     Indication: DEPRESSION
     Dosage: 160 MILLIGRAM
  5. METHADONE [Concomitant]
     Indication: BACK PAIN
     Dosage: 40 MILLIGRAM DAILY
  6. DILAUDID [Concomitant]
     Indication: BACK PAIN

REACTIONS (6)
  - Depression [Unknown]
  - Bipolar disorder [Unknown]
  - Hypoaesthesia [Unknown]
  - Injection site erythema [Unknown]
  - Injection site bruising [Unknown]
  - Pain in extremity [Unknown]
